FAERS Safety Report 12461163 (Version 1)
Quarter: 2016Q2

REPORT INFORMATION
  Report Type: Spontaneous
  Country: US (occurrence: US)
  Receive Date: 20160613
  Receipt Date: 20160613
  Transmission Date: 20160815
  Serious: Yes (Other)
  Sender: FDA-Public Use
  Company Number: US-US WORLDMEDS, LLC-USW201602-000222

PATIENT
  Age: 66 Year
  Sex: Female
  Weight: 62.59 kg

DRUGS (8)
  1. ROPINIROLE. [Concomitant]
     Active Substance: ROPINIROLE
  2. APOKYN [Suspect]
     Active Substance: APOMORPHINE HYDROCHLORIDE
     Route: 058
     Dates: start: 20160222, end: 20160316
  3. CYCLOBENZAPRIN [Concomitant]
     Active Substance: CYCLOBENZAPRINE
  4. MAGNESIUM GLYCINATE [Concomitant]
     Active Substance: MAGNESIUM GLYCINATE
  5. APOKYN [Suspect]
     Active Substance: APOMORPHINE HYDROCHLORIDE
     Indication: PARKINSON^S DISEASE
     Route: 058
     Dates: start: 20160217
  6. MELATONIN [Concomitant]
     Active Substance: MELATONIN
     Route: 060
  7. MIRALAX [Concomitant]
     Active Substance: POLYETHYLENE GLYCOL 3350
  8. ASPIRIN. [Concomitant]
     Active Substance: ASPIRIN

REACTIONS (2)
  - Yawning [Recovered/Resolved]
  - Parkinson^s disease [Recovered/Resolved]

NARRATIVE: CASE EVENT DATE: 20160217
